FAERS Safety Report 12305540 (Version 1)
Quarter: 2016Q2

REPORT INFORMATION
  Report Type: Spontaneous
  Country: US (occurrence: US)
  Receive Date: 20160426
  Receipt Date: 20160426
  Transmission Date: 20160815
  Serious: No
  Sender: FDA-Public Use
  Company Number: US-009507513-1604USA014709

PATIENT
  Age: 23 Year
  Sex: Female

DRUGS (1)
  1. NUVARING [Suspect]
     Active Substance: ETHINYL ESTRADIOL\ETONOGESTREL
     Indication: CONTRACEPTION
     Dosage: DOSE/FREQUENCY 1 RING-3 WEEKS IN WITH 1 RING FREE WEEK
     Route: 067
     Dates: end: 201604

REACTIONS (2)
  - Unintended pregnancy [Unknown]
  - Pregnancy with contraceptive device [Unknown]

NARRATIVE: CASE EVENT DATE: 20160421
